FAERS Safety Report 22692888 (Version 2)
Quarter: 2024Q3

REPORT INFORMATION
  Report Type: Spontaneous
  Country: US (occurrence: US)
  Receive Date: 20230711
  Receipt Date: 20240722
  Transmission Date: 20241016
  Serious: No
  Sender: ASTELLAS
  Company Number: US-ASTELLAS-2023US006563

PATIENT
  Sex: Female

DRUGS (1)
  1. MYRBETRIQ [Suspect]
     Active Substance: MIRABEGRON
     Indication: Hypertonic bladder
     Route: 065
     Dates: start: 20230213

REACTIONS (5)
  - Hypertonic bladder [Unknown]
  - Condition aggravated [Unknown]
  - Fatigue [Unknown]
  - Asthenia [Unknown]
  - Decreased activity [Unknown]
